FAERS Safety Report 4429741-7 (Version None)
Quarter: 2004Q3

REPORT INFORMATION
  Report Type: 
  Country: None (occurrence: None)
  Receive Date: 20040820
  Receipt Date: 20040810
  Transmission Date: 20050211
  Serious: Yes (Hospitalization)
  Sender: FDA-Public Use
  Company Number: US-JNJFOC-20040602211

PATIENT
  Age: 54 Year
  Sex: Female

DRUGS (6)
  1. REMICADE [Suspect]
     Indication: ARTHRITIS
     Route: 042
  2. REMICADE [Suspect]
     Indication: RHEUMATOID ARTHRITIS
     Route: 042
  3. BEXTRA [Concomitant]
     Route: 049
  4. ZANAFLEX [Concomitant]
     Route: 049
  5. EFFEXOR [Concomitant]
     Route: 049
  6. PREDNISONE [Concomitant]
     Route: 049

REACTIONS (6)
  - ABDOMINAL PAIN [None]
  - DIARRHOEA [None]
  - INFUSION RELATED REACTION [None]
  - MUSCLE CRAMP [None]
  - NAUSEA [None]
  - VOMITING [None]
